FAERS Safety Report 10540887 (Version 1)
Quarter: 2014Q4

REPORT INFORMATION
  Report Type: Spontaneous
  Country: US (occurrence: None)
  Receive Date: 20141023
  Receipt Date: 20141023
  Transmission Date: 20150529
  Serious: No
  Sender: FDA-Public Use
  Company Number: None

PATIENT
  Age: 33 Year
  Sex: Male
  Weight: 93.44 kg

DRUGS (2)
  1. CADISTA [Suspect]
     Active Substance: METHYLPREDNISOLONE
     Indication: JOINT INJURY
     Dosage: 4 MG ?ZPACK?TAKEN BY MOUTH
     Route: 048
     Dates: start: 20141016, end: 20141021
  2. CADISTA [Suspect]
     Active Substance: METHYLPREDNISOLONE
     Indication: STEROID THERAPY
     Dosage: 4 MG ?ZPACK?TAKEN BY MOUTH
     Route: 048
     Dates: start: 20141016, end: 20141021

REACTIONS (1)
  - Blood glucose decreased [None]

NARRATIVE: CASE EVENT DATE: 20141021
